FAERS Safety Report 4851548-7 (Version None)
Quarter: 2005Q4

REPORT INFORMATION
  Report Type: 
  Country: None (occurrence: None)
  Receive Date: 20051212
  Receipt Date: 20051130
  Transmission Date: 20060501
  Serious: Yes (Hospitalization)
  Sender: FDA-Public Use
  Company Number: US-ROCHE-427182

PATIENT
  Age: 54 Year
  Sex: Male

DRUGS (2)
  1. TAMIFLU [Suspect]
     Indication: INFLUENZA
     Route: 048
     Dates: start: 20051128, end: 20051129
  2. ZITHROMAX [Concomitant]
     Indication: INFLUENZA
     Route: 048
     Dates: start: 20051128

REACTIONS (1)
  - CEREBROVASCULAR ACCIDENT [None]
